FAERS Safety Report 8584145-0 (Version None)
Quarter: 2012Q3

REPORT INFORMATION
  Report Type: 
  Country: None (occurrence: None)
  Receive Date: 20120810
  Receipt Date: 20120802
  Transmission Date: 20120928
  Serious: Yes (Hospitalization, Other)
  Sender: FDA-Public Use
  Company Number: US-009507513-2010SP029016

PATIENT

DRUGS (4)
  1. DEPAKOTE [Concomitant]
     Indication: DEPRESSION
  2. SEROQUEL [Concomitant]
     Indication: DEPRESSION
  3. NUVARING [Suspect]
     Indication: MENSTRUATION IRREGULAR
     Dosage: 1 DF, QM
     Route: 067
     Dates: start: 20090901, end: 20100101
  4. WELLBUTRIN [Concomitant]

REACTIONS (2)
  - EMOTIONAL DISORDER [None]
  - CEREBRAL ARTERY THROMBOSIS [None]
